FAERS Safety Report 25924088 (Version 1)
Quarter: 2025Q4

REPORT INFORMATION
  Report Type: Spontaneous
  Country: US (occurrence: US)
  Receive Date: 20251015
  Receipt Date: 20251015
  Transmission Date: 20260117
  Serious: Yes (Life-Threatening, Hospitalization)
  Sender: MYLAN
  Company Number: US-MYLANLABS-2025M1087408

PATIENT
  Age: 64 Year
  Sex: Male

DRUGS (20)
  1. EPOPROSTENOL [Suspect]
     Active Substance: EPOPROSTENOL
     Indication: Heparin-induced thrombocytopenia
     Dosage: UNK, 5NG/KG/MINUTE
  2. EPOPROSTENOL [Suspect]
     Active Substance: EPOPROSTENOL
     Dosage: UNK, 5NG/KG/MINUTE
  3. EPOPROSTENOL [Suspect]
     Active Substance: EPOPROSTENOL
     Dosage: UNK, 5NG/KG/MINUTE
     Route: 065
  4. EPOPROSTENOL [Suspect]
     Active Substance: EPOPROSTENOL
     Dosage: UNK, 5NG/KG/MINUTE
     Route: 065
  5. EPOPROSTENOL [Suspect]
     Active Substance: EPOPROSTENOL
     Dosage: UNK, INCREASED BY 5 ?G/KG EVERY 5 MINUTES UNTIL REACHING 30NG/KG/ MINUTE.
  6. EPOPROSTENOL [Suspect]
     Active Substance: EPOPROSTENOL
     Dosage: UNK, INCREASED BY 5 ?G/KG EVERY 5 MINUTES UNTIL REACHING 30NG/KG/ MINUTE.
  7. EPOPROSTENOL [Suspect]
     Active Substance: EPOPROSTENOL
     Dosage: UNK, INCREASED BY 5 ?G/KG EVERY 5 MINUTES UNTIL REACHING 30NG/KG/ MINUTE.
     Route: 065
  8. EPOPROSTENOL [Suspect]
     Active Substance: EPOPROSTENOL
     Dosage: UNK, INCREASED BY 5 ?G/KG EVERY 5 MINUTES UNTIL REACHING 30NG/KG/ MINUTE.
     Route: 065
  9. MILRINONE [Suspect]
     Active Substance: MILRINONE
     Indication: Cardiac failure acute
     Dosage: UNK
  10. MILRINONE [Suspect]
     Active Substance: MILRINONE
     Dosage: UNK
     Route: 065
  11. MILRINONE [Suspect]
     Active Substance: MILRINONE
     Dosage: UNK
     Route: 065
  12. MILRINONE [Suspect]
     Active Substance: MILRINONE
     Dosage: UNK
  13. HEPARIN [Concomitant]
     Active Substance: HEPARIN SODIUM
     Indication: Thrombosis prophylaxis
     Dosage: UNK
  14. HEPARIN [Concomitant]
     Active Substance: HEPARIN SODIUM
     Dosage: UNK
     Route: 042
  15. HEPARIN [Concomitant]
     Active Substance: HEPARIN SODIUM
     Dosage: UNK
     Route: 042
  16. HEPARIN [Concomitant]
     Active Substance: HEPARIN SODIUM
     Dosage: UNK
  17. ARGATROBAN [Concomitant]
     Active Substance: ARGATROBAN
     Indication: Thrombosis prophylaxis
     Dosage: UNK
  18. ARGATROBAN [Concomitant]
     Active Substance: ARGATROBAN
     Dosage: UNK
     Route: 065
  19. ARGATROBAN [Concomitant]
     Active Substance: ARGATROBAN
     Dosage: UNK
     Route: 065
  20. ARGATROBAN [Concomitant]
     Active Substance: ARGATROBAN
     Dosage: UNK

REACTIONS (2)
  - Drug ineffective [Unknown]
  - Off label use [Unknown]
